FAERS Safety Report 8820311 (Version 2)
Quarter: 2013Q2

REPORT INFORMATION
  Report Type: Report from Study
  Country: JP (occurrence: JP)
  Receive Date: 20121002
  Receipt Date: 20130524
  Transmission Date: 20140414
  Serious: Yes (Hospitalization)
  Sender: FDA-Public Use
  Company Number: JP-009507513-1209JPN009278

PATIENT
  Age: 40 Year
  Sex: Female
  Weight: 57 kg

DRUGS (10)
  1. PEGINTRON [Suspect]
     Indication: CHRONIC HEPATITIS C
     Dosage: 1.5 MICROGRAM PER KILOGRAM, UNK
     Route: 058
     Dates: start: 20120725, end: 20120730
  2. PEGINTRON [Suspect]
     Dosage: 1.5 MICROGRAM PER KILOGRAM, UNK
     Route: 058
     Dates: start: 20120822
  3. REBETOL [Suspect]
     Indication: CHRONIC HEPATITIS C
     Dosage: 600 MG, UNK
     Route: 048
     Dates: start: 20120725, end: 20120730
  4. REBETOL [Suspect]
     Dosage: 600 MG, UNK
     Route: 048
     Dates: start: 20120822, end: 20120904
  5. REBETOL [Suspect]
     Dosage: 400 MG, UNK
     Route: 048
     Dates: start: 20120905, end: 20120911
  6. REBETOL [Suspect]
     Dosage: 200 MG, UNK
     Route: 048
     Dates: start: 20120912
  7. TELAVIC [Suspect]
     Indication: CHRONIC HEPATITIS C
     Dosage: 1500 MG, UNK
     Route: 048
     Dates: start: 20120725, end: 20120730
  8. TELAVIC [Suspect]
     Dosage: 1500 MG, QD
     Route: 048
     Dates: start: 20120822
  9. TAKEPRON [Concomitant]
     Indication: PROPHYLAXIS
     Dosage: 15 MG, QD
     Route: 048
     Dates: start: 20120829
  10. LOXONIN [Concomitant]
     Indication: PROPHYLAXIS
     Dosage: 60 MG PER DAY, PRN
     Route: 048
     Dates: start: 20120723

REACTIONS (2)
  - Pyelonephritis [Recovered/Resolved]
  - Calculus ureteric [Recovered/Resolved]
